FAERS Safety Report 6398609-1 (Version None)
Quarter: 2009Q4

REPORT INFORMATION
  Report Type: 
  Country: None (occurrence: None)
  Receive Date: 20091013
  Receipt Date: 20091005
  Transmission Date: 20100525
  Serious: Yes (Other)
  Sender: FDA-Public Use
  Company Number: US-AVENTIS-200918946US

PATIENT
  Age: 67 Year
  Sex: Female

DRUGS (2)
  1. LANTUS [Suspect]
     Dosage: DOSE: UNK
     Route: 058
  2. HUMALOG [Suspect]
     Dosage: DOSE: UNK

REACTIONS (2)
  - AMYLOIDOSIS [None]
  - SUBCUTANEOUS NODULE [None]
